FAERS Safety Report 7675766-8 (Version None)
Quarter: 2011Q3

REPORT INFORMATION
  Report Type: 
  Country: None (occurrence: None)
  Receive Date: 20110810
  Receipt Date: 20110801
  Transmission Date: 20111222
  Serious: Yes (Hospitalization, Other)
  Sender: FDA-Public Use
  Company Number: US-ASTRAZENECA-2011SE45711

PATIENT
  Age: 81 Year
  Sex: Male
  Weight: 83.9 kg

DRUGS (2)
  1. SYMBICORT [Suspect]
     Indication: DYSPNOEA
     Dosage: 160MG DAILY
     Route: 055
  2. SYMBICORT [Suspect]
     Indication: CHRONIC OBSTRUCTIVE PULMONARY DISEASE
     Dosage: 160MG DAILY
     Route: 055

REACTIONS (3)
  - TRANSIENT ISCHAEMIC ATTACK [None]
  - PERICARDIAL CYST [None]
  - HYPOAESTHESIA [None]
